FAERS Safety Report 25664077 (Version 2)
Quarter: 2025Q3

REPORT INFORMATION
  Report Type: Spontaneous
  Country: RU (occurrence: RU)
  Receive Date: 20250811
  Receipt Date: 20250818
  Transmission Date: 20251021
  Serious: Yes (Other)
  Sender: SANDOZ
  Company Number: RU-SANDOZ-SDZ2025RU057250

PATIENT
  Age: 61 Year
  Sex: Female

DRUGS (2)
  1. OLOKIZUMAB [Suspect]
     Active Substance: OLOKIZUMAB
     Indication: Rheumatoid arthritis
     Dosage: 64 MG S/C ONCE EVERY 4 WEEKS
     Route: 058
     Dates: start: 20241216, end: 20250120
  2. METHOTREXATE [Suspect]
     Active Substance: METHOTREXATE
     Indication: Rheumatoid arthritis
     Dosage: 15 MG/WEEK INTRAMUSCULARLY
     Route: 030

REACTIONS (3)
  - Uterine polyp [Recovering/Resolving]
  - Cervix carcinoma stage I [Recovering/Resolving]
  - Uterine polyp [Recovering/Resolving]

NARRATIVE: CASE EVENT DATE: 20241225
